FAERS Safety Report 9656752 (Version 1)
Quarter: 2013Q4

REPORT INFORMATION
  Report Type: Report from Study
  Country: US (occurrence: US)
  Receive Date: 20131030
  Receipt Date: 20131030
  Transmission Date: 20140711
  Serious: Yes (Other)
  Sender: FDA-Public Use
  Company Number: US-ROCHE-1293410

PATIENT
  Age: 70 Year
  Sex: Male
  Weight: 83.54 kg

DRUGS (29)
  1. AVASTIN [Suspect]
     Indication: DIATHERMY
     Route: 065
     Dates: start: 20090424
  2. AVASTIN [Suspect]
     Indication: PARATHYROID TUMOUR MALIGNANT
     Dosage: MIXED IN 150 CC NS
     Route: 041
     Dates: start: 20110531
  3. XELODA [Suspect]
     Indication: DIATHERMY
     Route: 048
     Dates: start: 20090424
  4. XELODA [Suspect]
     Indication: PARATHYROID TUMOUR MALIGNANT
     Dosage: DAILY X7, THEN 14 DAYS OFF DRUG
     Route: 048
     Dates: start: 20110531
  5. CAMPTOSAR [Concomitant]
     Route: 042
     Dates: start: 20090424
  6. COUMADIN [Concomitant]
     Route: 065
     Dates: start: 2010
  7. LOVENOX [Concomitant]
     Dosage: (80MG/0.8ML)
     Route: 058
     Dates: start: 20091001
  8. LOVENOX [Concomitant]
     Route: 058
     Dates: start: 20101011
  9. MEGACE [Concomitant]
     Route: 048
     Dates: start: 20091228
  10. DEXAMETHASONE [Concomitant]
     Dosage: TIMES 3 DAYS WITH CHEMO
     Route: 048
     Dates: start: 20100607
  11. DEXAMETHASONE [Concomitant]
     Dosage: MIXED IN 50 CC NS, EVERY 4 WEEKS WITH CHEMO
     Route: 042
     Dates: start: 20110531
  12. METHOCARBAMOL [Concomitant]
     Dosage: EVERY 6 HOURS AS NEEDED
     Route: 048
     Dates: start: 20100628
  13. PROCHLORPERAZINE MALEATE [Concomitant]
     Dosage: EVERY 4 HOURS AS NEEDED
     Route: 048
     Dates: start: 20100830
  14. REMERON [Concomitant]
     Route: 048
     Dates: start: 20110519
  15. AMBIEN [Concomitant]
     Dosage: AS NEEDED
     Route: 048
     Dates: start: 20101227
  16. BENADRYL (UNITED STATES) [Concomitant]
     Dosage: EVERY 4 WEEKS WITH CHEMO
     Route: 040
     Dates: start: 20110531
  17. CAMPTOSAR [Concomitant]
     Dosage: MIXED IN 500 CC DSW, EVERY 4 WEEKS
     Route: 041
     Dates: start: 20110531
  18. ONDANSETRON [Concomitant]
     Dosage: 8 MG BID X3, THEN AS NEEDED
     Route: 048
     Dates: start: 20110531
  19. LASIX [Concomitant]
     Route: 048
     Dates: end: 20110531
  20. ALOXI [Concomitant]
     Dosage: EVERY 4 WEEKS WITH CHEMO
     Route: 040
     Dates: start: 20110531
  21. HEPLOCK [Concomitant]
  22. SODIUM CHLORIDE [Concomitant]
  23. FAMOTIDINE [Concomitant]
     Route: 048
  24. FERROUS SULFATE [Concomitant]
     Route: 048
  25. NORCO [Concomitant]
     Dosage: 7.5-325 MG
     Route: 048
  26. ENOXAPARIN [Concomitant]
     Dosage: 80 MG/0.8 ML, 1 SOLUTION DAILY
     Route: 065
  27. IRINOTECAN [Concomitant]
  28. MIRTAZAPINE [Concomitant]
     Route: 048
  29. ZOLPIDEM TARTRATE [Concomitant]
     Route: 048

REACTIONS (16)
  - Hip fracture [Unknown]
  - Diarrhoea [Unknown]
  - Fatigue [Unknown]
  - Contusion [Unknown]
  - Temperature intolerance [Unknown]
  - Abdominal distension [Unknown]
  - Back pain [Unknown]
  - Ascites [Unknown]
  - Iron deficiency anaemia [Unknown]
  - Deep vein thrombosis [Unknown]
  - Joint stiffness [Unknown]
  - Local swelling [Unknown]
  - Full blood count abnormal [Unknown]
  - Weight decreased [Unknown]
  - Constipation [Unknown]
  - Hernia [Unknown]
